FAERS Safety Report 6250761-4 (Version None)
Quarter: 2009Q2

REPORT INFORMATION
  Report Type: 
  Country: None (occurrence: None)
  Receive Date: 20090630
  Receipt Date: 20081010
  Transmission Date: 20091009
  Serious: No
  Sender: FDA-Public Use
  Company Number: US-ABBOTT-08P-163-0478165-00

PATIENT
  Sex: Female

DRUGS (6)
  1. ZEMPLAR [Suspect]
     Indication: HYPERPARATHYROIDISM
     Route: 048
     Dates: start: 20080801, end: 20080901
  2. ZEMPLAR [Suspect]
     Route: 048
     Dates: start: 20080901
  3. ATORVASTATIN CALCIUM [Concomitant]
     Indication: DRUG USE FOR UNKNOWN INDICATION
  4. OXAZEPAM [Concomitant]
     Indication: DRUG USE FOR UNKNOWN INDICATION
     Dosage: A BENZODIAZEPINE = CYP3A4 SUBTRATE
  5. RHYTHMOL [Concomitant]
     Indication: FATIGUE
  6. OTC MULTI-VITAMIN/MINERAL [Concomitant]
     Indication: DRUG USE FOR UNKNOWN INDICATION
     Dates: start: 20080101

REACTIONS (1)
  - FATIGUE [None]
